FAERS Safety Report 8176106-0 (Version None)
Quarter: 2012Q1

REPORT INFORMATION
  Report Type: 
  Country: None (occurrence: None)
  Receive Date: 20120301
  Receipt Date: 20120220
  Transmission Date: 20120608
  Serious: Yes (Hospitalization)
  Sender: FDA-Public Use
  Company Number: FR-BRISTOL-MYERS SQUIBB COMPANY-16412744

PATIENT
  Age: 94 Year
  Sex: Female

DRUGS (10)
  1. IRBESARTAN [Concomitant]
  2. POTASSIUM CHLORIDE [Concomitant]
  3. LASIX [Concomitant]
  4. OMEPRAZOLE [Concomitant]
  5. AMLODIPINE BESYLATE [Concomitant]
  6. SECTRAL [Concomitant]
  7. ZOCOR [Concomitant]
  8. INNOHEP [Suspect]
     Indication: THROMBOPHLEBITIS
     Route: 058
     Dates: start: 20101209, end: 20101215
  9. ACEBUTOLOL [Concomitant]
  10. COUMADIN [Suspect]
     Indication: THROMBOPHLEBITIS
     Route: 048
     Dates: start: 20101209, end: 20101215

REACTIONS (2)
  - MICROCYTIC ANAEMIA [None]
  - INTERNATIONAL NORMALISED RATIO INCREASED [None]
